FAERS Safety Report 22129307 (Version 5)
Quarter: 2024Q3

REPORT INFORMATION
  Report Type: Spontaneous
  Country: US (occurrence: US)
  Receive Date: 20230323
  Receipt Date: 20240905
  Transmission Date: 20241017
  Serious: No
  Sender: GLAXOSMITHKLINE
  Company Number: US-GSK-US2023042555

PATIENT
  Age: 75 Year
  Sex: Female

DRUGS (3)
  1. NUCALA [Suspect]
     Active Substance: MEPOLIZUMAB
     Indication: Asthma
     Dosage: 100 MG/ML
     Dates: start: 20230211, end: 20230211
  2. NUCALA [Suspect]
     Active Substance: MEPOLIZUMAB
     Indication: Severe asthma with fungal sensitisation
     Dosage: 100 MG
  3. NUCALA [Suspect]
     Active Substance: MEPOLIZUMAB
     Dosage: 1 PUFF(S)

REACTIONS (8)
  - Contusion [Recovered/Resolved]
  - Exposure via skin contact [Unknown]
  - Product use in unapproved indication [Unknown]
  - Incorrect dose administered [Unknown]
  - Accidental exposure to product [Unknown]
  - Product dose omission issue [Not Recovered/Not Resolved]
  - Drug ineffective [Unknown]
  - Product complaint [Unknown]

NARRATIVE: CASE EVENT DATE: 20230311
